FAERS Safety Report 12083724 (Version 1)
Quarter: 2016Q1

REPORT INFORMATION
  Report Type: Spontaneous
  Country: GR (occurrence: GR)
  Receive Date: 20160217
  Receipt Date: 20160217
  Transmission Date: 20160526
  Serious: Yes (Other)
  Sender: FDA-Public Use
  Company Number: GR-JNJFOC-20160208945

PATIENT
  Age: 58 Year
  Sex: Female
  Weight: 72 kg

DRUGS (2)
  1. SIMPONI [Suspect]
     Active Substance: GOLIMUMAB
     Indication: PSORIATIC ARTHROPATHY
     Route: 058
     Dates: start: 20151008, end: 20160109
  2. METOJECT [Concomitant]
     Active Substance: METHOTREXATE SODIUM
     Indication: CHORIORETINITIS
     Route: 058
     Dates: start: 2013

REACTIONS (9)
  - Breast pain [Recovering/Resolving]
  - Arthralgia [Recovering/Resolving]
  - Congestive cardiomyopathy [Recovering/Resolving]
  - Muscular weakness [Recovering/Resolving]
  - Pruritus [Recovering/Resolving]
  - Muscle disorder [Recovering/Resolving]
  - Rash [Recovering/Resolving]
  - Alopecia [Recovering/Resolving]
  - Breast disorder female [Recovering/Resolving]
